FAERS Safety Report 13439856 (Version 3)
Quarter: 2017Q2

REPORT INFORMATION
  Report Type: Spontaneous
  Country: US (occurrence: US)
  Receive Date: 20170413
  Receipt Date: 20170613
  Transmission Date: 20170830
  Serious: Yes (Hospitalization, Other)
  Sender: FDA-Public Use
  Company Number: US-MYLANLABS-2017M1022450

PATIENT

DRUGS (1)
  1. LITHIUM. [Suspect]
     Active Substance: LITHIUM
     Indication: BIPOLAR DISORDER
     Dosage: AVERAGE DAILY DOSE OF 1050 MG (900MG ONE DAY AND 1200 MG THE NEXT MORNING, ALTERING)
     Route: 048
     Dates: start: 1994, end: 201306

REACTIONS (10)
  - Overdose [Unknown]
  - Feeding disorder [Unknown]
  - Ankle fracture [Unknown]
  - Cerebral disorder [Recovered/Resolved]
  - Weight decreased [Unknown]
  - Delusion [Unknown]
  - Parkinsonism [Unknown]
  - Withdrawal syndrome [Unknown]
  - Toxicity to various agents [Unknown]
  - Arthropathy [Unknown]

NARRATIVE: CASE EVENT DATE: 2013
